FAERS Safety Report 7068654-1 (Version None)
Quarter: 2010Q4

REPORT INFORMATION
  Report Type: 
  Country: None (occurrence: None)
  Receive Date: 20101028
  Receipt Date: 20101026
  Transmission Date: 20110411
  Serious: Yes (Life-Threatening, Hospitalization, Other)
  Sender: FDA-Public Use
  Company Number: GB-BRISTOL-MYERS SQUIBB COMPANY-15134927

PATIENT
  Age: 53 Year
  Sex: Female

DRUGS (8)
  1. ABILIFY [Suspect]
     Indication: SCHIZOAFFECTIVE DISORDER
     Dosage: 1 DF = 20/30MG PER DAYS UNTIL 10 MONTHS AGO REDUCED TO 10MG/D
     Route: 048
     Dates: start: 20090201
  2. LAMOTRIGINE [Suspect]
     Indication: SCHIZOAFFECTIVE DISORDER
     Route: 048
     Dates: start: 20080101
  3. MIRTAZAPINE [Suspect]
     Indication: SCHIZOAFFECTIVE DISORDER
     Route: 048
     Dates: start: 20100401
  4. CLONAZEPAM [Suspect]
     Indication: SCHIZOAFFECTIVE DISORDER
     Route: 048
     Dates: start: 20090801
  5. OXALIPLATIN [Concomitant]
  6. METFORMIN [Concomitant]
  7. NOVORAPID [Concomitant]
  8. LEVOTHYROXINE SODIUM [Concomitant]

REACTIONS (5)
  - DIABETES MELLITUS [None]
  - GASTROINTESTINAL CARCINOMA [None]
  - HAEMORRHAGE [None]
  - OEDEMA PERIPHERAL [None]
  - WHITE BLOOD CELL COUNT DECREASED [None]
